FAERS Safety Report 9485729 (Version 1)
Quarter: 2013Q3

REPORT INFORMATION
  Report Type: Spontaneous
  Country: CG (occurrence: CG)
  Receive Date: 20130829
  Receipt Date: 20130829
  Transmission Date: 20140515
  Serious: Yes (Hospitalization, Disabling, Other)
  Sender: FDA-Public Use
  Company Number: CG-009507513-1308COG013354

PATIENT
  Age: 20 Year
  Sex: Male
  Weight: 79 kg

DRUGS (1)
  1. IVERMECTIN [Suspect]
     Indication: ONCHOCERCIASIS
     Dosage: 4 DF, ONCE
     Route: 048
     Dates: start: 20120225, end: 20120225

REACTIONS (7)
  - Speech disorder [Not Recovered/Not Resolved]
  - Depressed level of consciousness [Not Recovered/Not Resolved]
  - Hemiplegia [Not Recovered/Not Resolved]
  - Toxic encephalopathy [Not Recovered/Not Resolved]
  - Asthenia [Not Recovered/Not Resolved]
  - Gait disturbance [Not Recovered/Not Resolved]
  - Pyrexia [Not Recovered/Not Resolved]
